FAERS Safety Report 18945900 (Version 3)
Quarter: 2021Q4

REPORT INFORMATION
  Report Type: Report from Study
  Country: US (occurrence: US)
  Receive Date: 20210226
  Receipt Date: 20211026
  Transmission Date: 20220303
  Serious: No
  Sender: FDA-Public Use
  Company Number: NVSC2021US045656

PATIENT
  Sex: Male

DRUGS (2)
  1. ENTRESTO [Suspect]
     Active Substance: SACUBITRIL\VALSARTAN
     Indication: Product used for unknown indication
     Dosage: UNK, BID
     Route: 048
  2. ENTRESTO [Suspect]
     Active Substance: SACUBITRIL\VALSARTAN
     Dosage: UNK UNK, BID
     Route: 048

REACTIONS (10)
  - Hypertension [Unknown]
  - Dyspnoea [Unknown]
  - Weight increased [Unknown]
  - Abdominal discomfort [Unknown]
  - Fluid retention [Unknown]
  - Abdominal distension [Unknown]
  - Wheezing [Unknown]
  - Asthenia [Unknown]
  - Cough [Unknown]
  - Inappropriate schedule of product administration [Unknown]
